FAERS Safety Report 8374468-2 (Version None)
Quarter: 2012Q2

REPORT INFORMATION
  Report Type: 
  Country: None (occurrence: None)
  Receive Date: 20120521
  Receipt Date: 20120515
  Transmission Date: 20120825
  Serious: Yes (Death)
  Sender: FDA-Public Use
  Company Number: CHPA2012US010475

PATIENT
  Age: 58 Year
  Sex: Male

DRUGS (1)
  1. PHENYLEPHRINE HCL [Suspect]
     Indication: NASAL CONGESTION
     Dosage: UNK, UNK
     Route: 045

REACTIONS (1)
  - AMYOTROPHIC LATERAL SCLEROSIS [None]
